FAERS Safety Report 8849177 (Version 1)
Quarter: 2012Q4

REPORT INFORMATION
  Report Type: Spontaneous
  Country: US (occurrence: None)
  Receive Date: 20121017
  Receipt Date: 20121017
  Transmission Date: 20130627
  Serious: Yes (Hospitalization, Other)
  Sender: FDA-Public Use
  Company Number: None

PATIENT
  Age: 60 Year
  Sex: Female

DRUGS (2)
  1. DOCETAXEL [Suspect]
     Indication: BREAST CANCER STAGE II
     Route: 041
  2. DOCETAXEL [Suspect]
     Indication: BREAST CANCER
     Route: 041

REACTIONS (4)
  - Abdominal pain [None]
  - Diarrhoea [None]
  - Febrile neutropenia [None]
  - Dehydration [None]
